FAERS Safety Report 9426714 (Version 1)
Quarter: 2013Q3

REPORT INFORMATION
  Report Type: Report from Study
  Country: CA (occurrence: CA)
  Receive Date: 20130730
  Receipt Date: 20130730
  Transmission Date: 20140515
  Serious: Yes (Other)
  Sender: FDA-Public Use
  Company Number: CA-JNJFOC-20130716675

PATIENT
  Age: 41 Year
  Sex: Female
  Weight: 85.6 kg

DRUGS (2)
  1. REMICADE [Suspect]
     Indication: CROHN^S DISEASE
     Route: 042
     Dates: start: 20110224
  2. IMOVANE [Concomitant]
     Route: 065

REACTIONS (2)
  - Menorrhagia [Recovered/Resolved]
  - Local swelling [Recovered/Resolved]
